FAERS Safety Report 6756689-5 (Version None)
Quarter: 2010Q2

REPORT INFORMATION
  Report Type: 
  Country: None (occurrence: None)
  Receive Date: 20100603
  Receipt Date: 20100603
  Transmission Date: 20101027
  Serious: No
  Sender: FDA-Public Use
  Company Number: None

PATIENT
  Age: 80 Year
  Sex: Male
  Weight: 69.4003 kg

DRUGS (1)
  1. PREVIDENT 5000 PLUS NA FL 1.1% COLGATE [Suspect]
     Dosage: PEA SIZE PASTE 1X DAILY ORAL BRUSHING
     Route: 048

REACTIONS (1)
  - PRODUCT LABEL ISSUE [None]
